FAERS Safety Report 6412271-0 (Version None)
Quarter: 2009Q4

REPORT INFORMATION
  Report Type: 
  Country: None (occurrence: None)
  Receive Date: 20091023
  Receipt Date: 20091016
  Transmission Date: 20100525
  Serious: Yes (Other)
  Sender: FDA-Public Use
  Company Number: US-ASTRAZENECA-2009SE20911

PATIENT
  Age: 934 Month
  Sex: Female
  Weight: 55.3 kg

DRUGS (3)
  1. ENTOCORT EC [Suspect]
     Indication: COLITIS
     Route: 048
     Dates: start: 20090731
  2. ENTOCORT EC [Suspect]
     Dosage: THREE CAPSULES EVERY OTHER DAY ALTERNATING WITH TWO CAPSULES EVERY OTHER DAY.
     Route: 048
  3. ENTOCORT EC [Suspect]
     Dosage: TWO CAPSULES EVERY OTHER DAY ALTERNATING WITH ONE CAPSULE EVERY OTHER DAY.
     Route: 048

REACTIONS (4)
  - BLINDNESS TRANSIENT [None]
  - CONFUSIONAL STATE [None]
  - SINUS DISORDER [None]
  - WEIGHT INCREASED [None]
